FAERS Safety Report 9038815 (Version 1)
Quarter: 2013Q1

REPORT INFORMATION
  Report Type: Spontaneous
  Country: US (occurrence: None)
  Receive Date: 20130123
  Receipt Date: 20130123
  Transmission Date: 20140127
  Serious: Yes (Hospitalization)
  Sender: FDA-Public Use
  Company Number: None

PATIENT
  Age: 79 None
  Sex: Female
  Weight: 48.08 kg

DRUGS (1)
  1. LEVOFLOXACIN [Suspect]
     Indication: BRONCHITIS
     Dates: start: 20121210, end: 20121217

REACTIONS (4)
  - Pain in extremity [None]
  - Pain in extremity [None]
  - Arthralgia [None]
  - Gait disturbance [None]
